FAERS Safety Report 16362375 (Version 2)
Quarter: 2019Q4

REPORT INFORMATION
  Report Type: Spontaneous
  Country: US (occurrence: US)
  Receive Date: 20190528
  Receipt Date: 20191003
  Transmission Date: 20200122
  Serious: No
  Sender: FDA-Public Use
  Company Number: US-PFIZER INC-2019226541

PATIENT
  Age: 64 Year
  Sex: Female

DRUGS (6)
  1. XELJANZ XR [Suspect]
     Active Substance: TOFACITINIB CITRATE
     Indication: RHEUMATOID ARTHRITIS
     Dosage: 11 MG, DAILY
     Route: 048
     Dates: start: 20190301
  2. XELJANZ XR [Suspect]
     Active Substance: TOFACITINIB CITRATE
     Indication: PSORIATIC ARTHROPATHY
  3. FISH OIL [Concomitant]
     Active Substance: FISH OIL
     Dosage: UNK (340-100)
  4. TURMERIC [Concomitant]
     Active Substance: HERBALS\TURMERIC
     Dosage: UNK (450MG-5)
  5. VITAMIN C [Concomitant]
     Active Substance: ASCORBIC ACID
     Dosage: 100 MG, UNK
  6. ASPIRIN EC [Concomitant]
     Active Substance: ASPIRIN
     Dosage: 325 MG, UNK

REACTIONS (2)
  - Drug ineffective [Unknown]
  - Gait disturbance [Unknown]
